FAERS Safety Report 26133884 (Version 1)
Quarter: 2025Q4

REPORT INFORMATION
  Report Type: Spontaneous
  Country: EU (occurrence: EU)
  Receive Date: 20251209
  Receipt Date: 20251209
  Transmission Date: 20260117
  Serious: Yes (Other)
  Sender: RECORDATI
  Company Number: EU-ORPHANEU-2025008783

PATIENT
  Age: 42 Year
  Sex: Male

DRUGS (1)
  1. SIGNIFOR LAR [Suspect]
     Active Substance: PASIREOTIDE PAMOATE
     Indication: Product used for unknown indication
     Dosage: 40 MG

REACTIONS (1)
  - Diabetes mellitus inadequate control [Unknown]
